FAERS Safety Report 9142518 (Version 2)
Quarter: 2013Q1

REPORT INFORMATION
  Report Type: Spontaneous
  Country: US (occurrence: US)
  Receive Date: 20130306
  Receipt Date: 20130326
  Transmission Date: 20140127
  Serious: Yes (Hospitalization)
  Sender: FDA-Public Use
  Company Number: US-BIOGENIDEC-2013BI020695

PATIENT
  Age: 44 Year
  Sex: Female

DRUGS (4)
  1. TYSABRI [Suspect]
     Indication: MULTIPLE SCLEROSIS
     Route: 042
     Dates: start: 20090701
  2. CYMBALTA [Concomitant]
     Indication: ANALGESIC THERAPY
  3. NEURONTIN [Concomitant]
     Indication: ANALGESIC THERAPY
  4. LASIX [Concomitant]
     Indication: OEDEMA

REACTIONS (5)
  - Drug specific antibody present [Unknown]
  - Asthenia [Recovered/Resolved]
  - Pain in extremity [Recovered/Resolved]
  - Oedema [Recovered/Resolved]
  - Hypokalaemia [Recovered/Resolved]
